FAERS Safety Report 8955436 (Version 13)
Quarter: 2013Q3

REPORT INFORMATION
  Report Type: Report from Study
  Country: MX (occurrence: MX)
  Receive Date: 20121207
  Receipt Date: 20130716
  Transmission Date: 20140515
  Serious: Yes (Hospitalization, Other)
  Sender: FDA-Public Use
  Company Number: MX-ABBOTT-12P-107-1017471-00

PATIENT
  Age: 16 Year
  Sex: Female
  Weight: 41 kg

DRUGS (11)
  1. HUMIRA [Suspect]
     Indication: JUVENILE IDIOPATHIC ARTHRITIS
     Route: 058
     Dates: start: 20110920, end: 20111114
  2. HUMIRA [Suspect]
     Route: 058
     Dates: start: 20111128, end: 20120615
  3. HUMIRA [Suspect]
     Route: 058
     Dates: start: 20120817, end: 20121030
  4. DICLOFENAC [Concomitant]
     Indication: JUVENILE IDIOPATHIC ARTHRITIS
     Route: 048
     Dates: start: 20100901, end: 20121125
  5. HALOPERIDOL [Concomitant]
     Indication: BIPOLAR DISORDER
     Route: 048
     Dates: start: 20090101, end: 20121128
  6. LEVOTHYROXINE [Concomitant]
     Indication: HYPOTHYROIDISM
     Route: 048
     Dates: start: 20100501, end: 20111205
  7. LEVOTHYROXINE [Concomitant]
     Route: 048
     Dates: start: 20111206, end: 20120322
  8. LEVOTHYROXINE [Concomitant]
     Route: 048
     Dates: start: 20120323, end: 20120517
  9. LEVOTHYROXINE [Concomitant]
     Route: 048
     Dates: start: 20120518, end: 20121125
  10. METICORTEN [Concomitant]
     Indication: JUVENILE IDIOPATHIC ARTHRITIS
     Dosage: 10 MG AM, 5 MG PM
     Route: 048
     Dates: start: 20120220, end: 20121125
  11. HIDROCORTISONA [Concomitant]
     Indication: DERMATITIS
     Route: 061
     Dates: start: 20121105, end: 20121128

REACTIONS (1)
  - Diffuse vasculitis [Recovered/Resolved]
